FAERS Safety Report 4638521-9 (Version None)
Quarter: 2005Q2

REPORT INFORMATION
  Report Type: 
  Country: None (occurrence: None)
  Receive Date: 20050418
  Receipt Date: 20050418
  Transmission Date: 20051028
  Serious: No
  Sender: FDA-Public Use
  Company Number: None

PATIENT
  Sex: Male
  Weight: 124 kg

DRUGS (6)
  1. CYTOXAN [Suspect]
     Indication: MULTIPLE MYELOMA
     Dosage: 4 G/M2 IV DAY +1
     Route: 042
     Dates: start: 20041207
  2. MELPHALAN [Suspect]
     Dosage: 200 MG/M2 IV DASY - 2
     Route: 042
  3. FLUDARABINE PHOSPHATE [Suspect]
     Dosage: 30 MG/M2 IV DAYS-7 THRU -3
     Route: 042
  4. CYCLOPHOSPHAMIDE [Suspect]
     Dosage: 1 G/M2 IV DAYS 4 THRU 3
     Route: 042
  5. METHOTREXATE [Suspect]
     Dosage: 5 MG/M2 DAYS +1, +3, +6
  6. G-CSF [Suspect]
     Dosage: 5 MCG /KG/DAY DAY +7 UNTIL ANC } 1000

REACTIONS (8)
  - BLOOD CULTURE POSITIVE [None]
  - CENTRAL LINE INFECTION [None]
  - DYSPNOEA EXERTIONAL [None]
  - FATIGUE [None]
  - HYPERGLYCAEMIA [None]
  - NEUTROPHIL COUNT DECREASED [None]
  - PYREXIA [None]
  - RENAL FAILURE [None]
